FAERS Safety Report 6401036-1 (Version None)
Quarter: 2009Q4

REPORT INFORMATION
  Report Type: 
  Country: None (occurrence: None)
  Receive Date: 20091013
  Receipt Date: 20091013
  Transmission Date: 20100525
  Serious: Yes (Other)
  Sender: FDA-Public Use
  Company Number: None

PATIENT

DRUGS (2)
  1. HYDROMORPHONE HCL [Suspect]
     Indication: PAIN
     Dosage: 2 TO 4MG IV OVER PERIOD OF 30 MINS
     Route: 042
     Dates: start: 20091006, end: 20091006
  2. HYDROMORPHONE HCL [Suspect]
     Indication: PAIN
     Dosage: 2 TO 4MG IV OVER PERIOD OF 30 MINS
     Route: 042
     Dates: start: 20091008, end: 20091008

REACTIONS (1)
  - INFUSION SITE IRRITATION [None]
